FAERS Safety Report 7589796-8 (Version None)
Quarter: 2011Q2

REPORT INFORMATION
  Report Type: 
  Country: None (occurrence: None)
  Receive Date: 20110627
  Receipt Date: 20110610
  Transmission Date: 20111010
  Serious: Yes (Other)
  Sender: FDA-Public Use
  Company Number: JPI-P-003411

PATIENT
  Age: 38 Year
  Sex: Male
  Weight: 94 kg

DRUGS (2)
  1. MODAFINIL [Concomitant]
  2. XYREM [Suspect]
     Indication: CATAPLEXY
     Dosage: 4.5 GM (2.25 GM,2 IN 1 D), ORAL
     Route: 048
     Dates: start: 20080223, end: 20080522

REACTIONS (20)
  - INAPPROPRIATE SCHEDULE OF DRUG ADMINISTRATION [None]
  - DECREASED APPETITE [None]
  - BULIMIA NERVOSA [None]
  - DEPRESSION [None]
  - CONFUSIONAL STATE [None]
  - PSYCHOMOTOR HYPERACTIVITY [None]
  - DISTURBANCE IN ATTENTION [None]
  - SOMNAMBULISM [None]
  - INSOMNIA [None]
  - DIZZINESS [None]
  - WEIGHT DECREASED [None]
  - BALANCE DISORDER [None]
  - HERNIA [None]
  - HEADACHE [None]
  - INCORRECT DOSE ADMINISTERED [None]
  - SYRINGE ISSUE [None]
  - INCONTINENCE [None]
  - DISORIENTATION [None]
  - TREATMENT NONCOMPLIANCE [None]
  - HUNGER [None]
